FAERS Safety Report 8064209-0 (Version None)
Quarter: 2011Q4

REPORT INFORMATION
  Report Type: 
  Country: None (occurrence: None)
  Receive Date: 20111221
  Receipt Date: 20110617
  Transmission Date: 20120403
  Serious: No
  Sender: FDA-Public Use
  Company Number: 2011S1000034

PATIENT
  Age: 53 Year
  Sex: Male
  Weight: 113.3993 kg

DRUGS (13)
  1. HYDROCODONE [Concomitant]
  2. STEROID [Concomitant]
  3. KRYSTEXXA [Suspect]
     Indication: GOUTY TOPHUS
     Dosage: X1;
     Dates: start: 20110414, end: 20110414
  4. KRYSTEXXA [Suspect]
     Indication: GOUTY TOPHUS
     Dosage: X1;
     Dates: start: 20110601, end: 20110601
  5. KRYSTEXXA [Suspect]
     Indication: GOUTY TOPHUS
     Dosage: X1;
     Dates: start: 20110427, end: 20110427
  6. KRYSTEXXA [Suspect]
     Indication: GOUTY TOPHUS
     Dosage: X1;
     Dates: start: 20110621
  7. KRYSTEXXA [Suspect]
     Indication: GOUTY TOPHUS
     Dosage: X1;
     Dates: start: 20110501, end: 20110501
  8. KRYSTEXXA [Suspect]
     Indication: GOUTY TOPHUS
     Dosage: X1;
     Dates: start: 20110328, end: 20110328
  9. KRYSTEXXA [Suspect]
     Indication: GOUTY TOPHUS
     Dosage: X1;
     Dates: start: 20110511, end: 20110511
  10. COLCHCINE [Concomitant]
  11. INDOCIN /0003801/ [Concomitant]
  12. METHYPRED [Concomitant]
  13. BENADRYL [Concomitant]

REACTIONS (3)
  - BACK PAIN [None]
  - ARTHRALGIA [None]
  - DYSPEPSIA [None]
